FAERS Safety Report 19679404 (Version 3)
Quarter: 2021Q3

REPORT INFORMATION
  Report Type: Report from Study
  Country: GB (occurrence: GB)
  Receive Date: 20210810
  Receipt Date: 20210828
  Transmission Date: 20211014
  Serious: Yes (Hospitalization)
  Sender: FDA-Public Use
  Company Number: NVSC2021GB037088

PATIENT
  Age: 60 Year
  Sex: Female

DRUGS (4)
  1. SANDOSTATIN LAR DEPOT [Suspect]
     Active Substance: OCTREOTIDE ACETATE
     Dosage: 30 MG, QMO (SOLUTION)
     Route: 030
     Dates: start: 20210215
  2. DEXAMETHASONE. [Concomitant]
     Active Substance: DEXAMETHASONE
     Indication: PRODUCT USED FOR UNKNOWN INDICATION
     Dosage: 4 MG, QD
     Route: 048
     Dates: start: 20210312
  3. SANDOSTATIN LAR DEPOT [Suspect]
     Active Substance: OCTREOTIDE ACETATE
     Dosage: 30 MG, Q2W (SOLUTION) (ONCE EVERY TWO WEEKS)
     Route: 030
  4. SANDOSTATIN LAR DEPOT [Suspect]
     Active Substance: OCTREOTIDE ACETATE
     Indication: NEUROENDOCRINE TUMOUR
     Dosage: 30 MG, Q4W (SOLUTION)
     Route: 030
     Dates: start: 20210119

REACTIONS (14)
  - Pancytopenia [Recovered/Resolved]
  - Dehydration [Recovering/Resolving]
  - Hyponatraemia [Recovering/Resolving]
  - Hypotension [Recovering/Resolving]
  - Tachycardia [Recovering/Resolving]
  - Inappropriate schedule of product administration [Unknown]
  - Acute kidney injury [Recovering/Resolving]
  - C-reactive protein increased [Recovering/Resolving]
  - Diarrhoea [Recovering/Resolving]
  - Weight decreased [Not Recovered/Not Resolved]
  - Hepatic function abnormal [Unknown]
  - Abdominal distension [Unknown]
  - Abdominal discomfort [Unknown]
  - Pain [Unknown]

NARRATIVE: CASE EVENT DATE: 20210719
